FAERS Safety Report 5956713-3 (Version None)
Quarter: 2008Q4

REPORT INFORMATION
  Report Type: 
  Country: None (occurrence: None)
  Receive Date: 20081118
  Receipt Date: 20081111
  Transmission Date: 20090506
  Serious: Yes (Death)
  Sender: FDA-Public Use
  Company Number: US-ASTRAZENECA-2008GB02134

PATIENT
  Age: 25567 Day
  Sex: Male
  Weight: 77.1 kg

DRUGS (4)
  1. CASODEX [Suspect]
     Dosage: 50MG UNIT DOSE
     Route: 048
     Dates: start: 20070126, end: 20070424
  2. CELECOXIB [Suspect]
     Dosage: 800MG
     Route: 048
     Dates: start: 20060818
  3. ZOLEDRONIC ACID [Suspect]
     Route: 042
     Dates: start: 20060818
  4. HORMONE THERAPY [Suspect]
     Dosage: 10.8MG
     Route: 065
     Dates: start: 20060906

REACTIONS (1)
  - MYOCARDIAL INFARCTION [None]
